FAERS Safety Report 4880741-2 (Version None)
Quarter: 2006Q1

REPORT INFORMATION
  Report Type: 
  Country: None (occurrence: None)
  Receive Date: 20060111
  Receipt Date: 20050913
  Transmission Date: 20060701
  Serious: No
  Sender: FDA-Public Use
  Company Number: 2005S1000219

PATIENT
  Age: 66 Year
  Weight: 64 kg

DRUGS (5)
  1. CUBICIN [Suspect]
     Indication: GRAFT INFECTION
     Dosage: 500 MG;Q24H;IV
     Route: 042
     Dates: start: 20050724, end: 20050918
  2. CUBICIN [Suspect]
     Indication: STAPHYLOCOCCAL BACTERAEMIA
     Dosage: 500 MG;Q24H;IV
     Route: 042
     Dates: start: 20050724, end: 20050918
  3. LIPITOR [Concomitant]
  4. LINEZOLID [Concomitant]
  5. VANCOMYCIN [Concomitant]

REACTIONS (1)
  - BLOOD CREATINE PHOSPHOKINASE INCREASED [None]
